FAERS Safety Report 7135057-0 (Version None)
Quarter: 2010Q4

REPORT INFORMATION
  Report Type: 
  Country: None (occurrence: None)
  Receive Date: 20101203
  Receipt Date: 20101130
  Transmission Date: 20110411
  Serious: Yes (Hospitalization)
  Sender: FDA-Public Use
  Company Number: PHHO2010FR14691

PATIENT
  Sex: Male
  Weight: 71 kg

DRUGS (3)
  1. CERTICAN [Suspect]
     Indication: RENAL TRANSPLANT
     Dosage: 5 MG
     Route: 048
     Dates: start: 20100703
  2. CELLCEPT [Suspect]
     Indication: RENAL TRANSPLANT
     Dosage: UNK
     Route: 048
     Dates: start: 20100628
  3. CORTANCYL [Concomitant]

REACTIONS (6)
  - BRONCHITIS [None]
  - DIABETES MELLITUS [None]
  - INFECTION [None]
  - OSTEOARTHRITIS [None]
  - PLEURAL EFFUSION [None]
  - PYREXIA [None]
